FAERS Safety Report 7766464-0 (Version None)
Quarter: 2011Q3

REPORT INFORMATION
  Report Type: 
  Country: None (occurrence: None)
  Receive Date: 20110922
  Receipt Date: 20110914
  Transmission Date: 20111222
  Serious: No
  Sender: FDA-Public Use
  Company Number: US-BIOGENIDEC-2011BI035522

PATIENT
  Age: 49 Year
  Sex: Female

DRUGS (4)
  1. TYSABRI [Suspect]
     Indication: MULTIPLE SCLEROSIS
     Route: 042
     Dates: start: 20110321
  2. TYSABRI [Suspect]
     Route: 042
     Dates: start: 20100512, end: 20100512
  3. TYSABRI [Suspect]
     Route: 042
     Dates: start: 20070919, end: 20080822
  4. AVONEX [Concomitant]
     Indication: MULTIPLE SCLEROSIS
     Route: 030

REACTIONS (2)
  - GAIT DISTURBANCE [None]
  - STRESS [None]
